FAERS Safety Report 13692124 (Version 1)
Quarter: 2017Q2

REPORT INFORMATION
  Report Type: Report from Study
  Country: JP (occurrence: JP)
  Receive Date: 20170627
  Receipt Date: 20170627
  Transmission Date: 20170830
  Serious: Yes (Other)
  Sender: FDA-Public Use
  Company Number: JP-AMGEN-JPNNI2017096759

PATIENT
  Age: 55 Year
  Sex: Female

DRUGS (71)
  1. CARFILZOMIB [Suspect]
     Active Substance: CARFILZOMIB
     Dosage: 27 MG/M2, UNK
     Route: 041
     Dates: start: 20170301, end: 20170301
  2. CARFILZOMIB [Suspect]
     Active Substance: CARFILZOMIB
     Dosage: 27 MG/M2, UNK
     Route: 041
     Dates: start: 20170329, end: 20170329
  3. CARFILZOMIB [Suspect]
     Active Substance: CARFILZOMIB
     Dosage: 27 MG/M2, UNK
     Route: 041
     Dates: start: 20170419, end: 20170419
  4. DEXAMETHASONE. [Suspect]
     Active Substance: DEXAMETHASONE
     Dosage: 3.3 MG, UNK
     Route: 065
     Dates: start: 20161201, end: 20161201
  5. DEXAMETHASONE. [Suspect]
     Active Substance: DEXAMETHASONE
     Dosage: 33 MG, UNK
     Route: 065
     Dates: start: 20161207, end: 20161207
  6. DEXAMETHASONE. [Suspect]
     Active Substance: DEXAMETHASONE
     Dosage: 3.3 MG, UNK
     Route: 065
     Dates: start: 20170215, end: 20170215
  7. DEXAMETHASONE. [Suspect]
     Active Substance: DEXAMETHASONE
     Dosage: 6.6 MG, UNK
     Route: 065
     Dates: start: 20170403, end: 20170403
  8. DEXAMETHASONE. [Suspect]
     Active Substance: DEXAMETHASONE
     Dosage: 6.6 MG, UNK
     Route: 065
     Dates: start: 20170426, end: 20170426
  9. DEXAMETHASONE. [Suspect]
     Active Substance: DEXAMETHASONE
     Dosage: 6.6 MG, UNK
     Route: 065
     Dates: start: 20170524, end: 20170524
  10. VALIXA [Suspect]
     Active Substance: VALGANCICLOVIR
     Indication: HERPES VIRUS INFECTION
     Dosage: 900 MG, UNK
     Route: 048
     Dates: end: 20161031
  11. CARFILZOMIB [Suspect]
     Active Substance: CARFILZOMIB
     Dosage: 27 MG/M2, UNK
     Route: 041
     Dates: start: 20170214, end: 20170215
  12. CARFILZOMIB [Suspect]
     Active Substance: CARFILZOMIB
     Dosage: 27 MG/M2, UNK
     Route: 041
     Dates: start: 20170227, end: 20170227
  13. CARFILZOMIB [Suspect]
     Active Substance: CARFILZOMIB
     Dosage: 27 MG/M2, UNK
     Route: 041
     Dates: start: 20170426, end: 20170426
  14. DEXAMETHASONE. [Suspect]
     Active Substance: DEXAMETHASONE
     Dosage: 33 MG, UNK
     Route: 065
     Dates: start: 20161108, end: 20161108
  15. DEXAMETHASONE. [Suspect]
     Active Substance: DEXAMETHASONE
     Dosage: 3.3 MG, UNK
     Route: 065
     Dates: start: 20170315, end: 20170315
  16. DEXAMETHASONE. [Suspect]
     Active Substance: DEXAMETHASONE
     Dosage: 8 MG, UNK
     Route: 065
     Dates: start: 20170510, end: 20170510
  17. FOSCAVIR [Concomitant]
     Active Substance: FOSCARNET SODIUM
     Indication: CYTOMEGALOVIRUS INFECTION
     Dosage: UNK
     Dates: start: 20170106, end: 20170428
  18. CARFILZOMIB [Suspect]
     Active Substance: CARFILZOMIB
     Dosage: 27 MG/M2, UNK
     Route: 041
     Dates: start: 20161130, end: 20161201
  19. CARFILZOMIB [Suspect]
     Active Substance: CARFILZOMIB
     Dosage: 27 MG/M2, UNK
     Route: 041
     Dates: start: 20170315, end: 20170315
  20. CARFILZOMIB [Suspect]
     Active Substance: CARFILZOMIB
     Dosage: 27 MG/M2, UNK
     Route: 041
     Dates: start: 20170412, end: 20170412
  21. CARFILZOMIB [Suspect]
     Active Substance: CARFILZOMIB
     Dosage: 27 MG/M2, UNK
     Route: 041
     Dates: start: 20170428, end: 20170428
  22. DEXAMETHASONE. [Suspect]
     Active Substance: DEXAMETHASONE
     Indication: PLASMA CELL MYELOMA
     Dosage: 33 MG, UNK
     Route: 065
     Dates: start: 20161025, end: 20161025
  23. DEXAMETHASONE. [Suspect]
     Active Substance: DEXAMETHASONE
     Dosage: 33 MG, UNK
     Route: 065
     Dates: start: 20161101, end: 20161101
  24. DEXAMETHASONE. [Suspect]
     Active Substance: DEXAMETHASONE
     Dosage: 3.3 MG, UNK
     Route: 065
     Dates: start: 20161208, end: 20161208
  25. DEXAMETHASONE. [Suspect]
     Active Substance: DEXAMETHASONE
     Dosage: 3.3 MG, UNK
     Route: 065
     Dates: start: 20170414, end: 20170414
  26. DEXAMETHASONE. [Suspect]
     Active Substance: DEXAMETHASONE
     Dosage: 3.3 MG, UNK
     Route: 065
     Dates: start: 20170518, end: 20170518
  27. CARFILZOMIB [Suspect]
     Active Substance: CARFILZOMIB
     Dosage: 27 MG/M2, UNK
     Route: 041
     Dates: start: 20161122, end: 20161122
  28. DEXAMETHASONE. [Suspect]
     Active Substance: DEXAMETHASONE
     Dosage: 3.3 MG, UNK
     Route: 065
     Dates: start: 20161026, end: 20161026
  29. DEXAMETHASONE. [Suspect]
     Active Substance: DEXAMETHASONE
     Dosage: 6.6 MG, UNK
     Route: 065
     Dates: start: 20170221, end: 20170221
  30. DEXAMETHASONE. [Suspect]
     Active Substance: DEXAMETHASONE
     Dosage: 3.3 MG, UNK
     Route: 065
     Dates: start: 20170301, end: 20170301
  31. DEXAMETHASONE. [Suspect]
     Active Substance: DEXAMETHASONE
     Dosage: 3.3 MG, UNK
     Route: 065
     Dates: start: 20170329, end: 20170329
  32. DEXAMETHASONE. [Suspect]
     Active Substance: DEXAMETHASONE
     Dosage: 3.3 MG, UNK
     Route: 065
     Dates: start: 20170428, end: 20170428
  33. VALIXA [Suspect]
     Active Substance: VALGANCICLOVIR
     Dosage: 900 MG, UNK
     Route: 048
     Dates: start: 20170430
  34. LENALIDOMIDE [Concomitant]
     Active Substance: LENALIDOMIDE
     Dosage: 10 MG, UNK
     Dates: start: 20161025, end: 20161114
  35. CARFILZOMIB [Suspect]
     Active Substance: CARFILZOMIB
     Indication: PLASMA CELL MYELOMA
     Dosage: 20 MG/M2, UNK
     Route: 041
     Dates: start: 20161025, end: 20161026
  36. CARFILZOMIB [Suspect]
     Active Substance: CARFILZOMIB
     Dosage: 27 MG/M2, UNK
     Route: 041
     Dates: start: 20161108, end: 20161109
  37. CARFILZOMIB [Suspect]
     Active Substance: CARFILZOMIB
     Dosage: 27 MG/M2, UNK
     Route: 041
     Dates: start: 20161124, end: 20161124
  38. CARFILZOMIB [Suspect]
     Active Substance: CARFILZOMIB
     Dosage: 27 MG/M2, UNK
     Route: 041
     Dates: start: 20170221, end: 20170222
  39. CARFILZOMIB [Suspect]
     Active Substance: CARFILZOMIB
     Dosage: 27 MG/M2, UNK
     Route: 041
     Dates: start: 20170327, end: 20170327
  40. CARFILZOMIB [Suspect]
     Active Substance: CARFILZOMIB
     Dosage: 27 MG/M2, UNK
     Route: 041
     Dates: start: 20170414, end: 20170414
  41. CARFILZOMIB [Suspect]
     Active Substance: CARFILZOMIB
     Dosage: 27 MG/M2, UNK
     Route: 041
     Dates: start: 20170517, end: 20170518
  42. CARFILZOMIB [Suspect]
     Active Substance: CARFILZOMIB
     Dosage: 27 MG/M2, UNK
     Route: 041
     Dates: start: 20170524, end: 20170524
  43. DEXAMETHASONE. [Suspect]
     Active Substance: DEXAMETHASONE
     Dosage: 3.3 MG, UNK
     Route: 065
     Dates: start: 20161122, end: 20161122
  44. DEXAMETHASONE. [Suspect]
     Active Substance: DEXAMETHASONE
     Dosage: 3.3 MG, UNK
     Route: 065
     Dates: start: 20161124, end: 20161124
  45. DEXAMETHASONE. [Suspect]
     Active Substance: DEXAMETHASONE
     Dosage: 6.6 MG, UNK
     Route: 065
     Dates: start: 20170214, end: 20170214
  46. DEXAMETHASONE. [Suspect]
     Active Substance: DEXAMETHASONE
     Dosage: 6.6 MG, UNK
     Route: 065
     Dates: start: 20170313, end: 20170313
  47. DEXAMETHASONE. [Suspect]
     Active Substance: DEXAMETHASONE
     Dosage: 6.6 MG, UNK
     Route: 065
     Dates: start: 20170321, end: 20170321
  48. DEXAMETHASONE. [Suspect]
     Active Substance: DEXAMETHASONE
     Dosage: 3.3 MG, UNK
     Route: 065
     Dates: start: 20170322, end: 20170322
  49. DEXAMETHASONE. [Suspect]
     Active Substance: DEXAMETHASONE
     Dosage: 3.3 MG, UNK
     Route: 065
     Dates: start: 20170421, end: 20170421
  50. VALIXA [Suspect]
     Active Substance: VALGANCICLOVIR
     Dosage: 900 MG, UNK
     Route: 048
     Dates: start: 20161113, end: 20170106
  51. LENALIDOMIDE [Concomitant]
     Active Substance: LENALIDOMIDE
     Dosage: 5 MG, UNK
     Dates: start: 20170218, end: 20170306
  52. CARFILZOMIB [Suspect]
     Active Substance: CARFILZOMIB
     Dosage: 27 MG/M2, UNK
     Route: 041
     Dates: start: 20161101, end: 20161102
  53. CARFILZOMIB [Suspect]
     Active Substance: CARFILZOMIB
     Dosage: 27 MG/M2, UNK
     Route: 041
     Dates: start: 20161207, end: 20161208
  54. CARFILZOMIB [Suspect]
     Active Substance: CARFILZOMIB
     Dosage: 27 MG/M2, UNK
     Route: 041
     Dates: start: 20170313, end: 20170313
  55. CARFILZOMIB [Suspect]
     Active Substance: CARFILZOMIB
     Dosage: 27 MG/M2, UNK
     Route: 041
     Dates: start: 20170421, end: 20170421
  56. DEXAMETHASONE. [Suspect]
     Active Substance: DEXAMETHASONE
     Dosage: 3.3 MG, UNK
     Route: 065
     Dates: start: 20170222, end: 20170222
  57. DEXAMETHASONE. [Suspect]
     Active Substance: DEXAMETHASONE
     Dosage: 6.6 MG, UNK
     Route: 065
     Dates: start: 20170227, end: 20170227
  58. DEXAMETHASONE. [Suspect]
     Active Substance: DEXAMETHASONE
     Dosage: 6.6 MG, UNK
     Route: 065
     Dates: start: 20170306, end: 20170306
  59. DEXAMETHASONE. [Suspect]
     Active Substance: DEXAMETHASONE
     Dosage: 8 MG, UNK
     Route: 065
     Dates: start: 20170517, end: 20170517
  60. LENALIDOMIDE [Concomitant]
     Active Substance: LENALIDOMIDE
     Dosage: 5 MG, UNK
     Dates: start: 20170313, end: 20170402
  61. LENALIDOMIDE [Concomitant]
     Active Substance: LENALIDOMIDE
     Dosage: 5 MG, UNK
     Dates: start: 20170412, end: 20170502
  62. DEXAMETHASONE. [Suspect]
     Active Substance: DEXAMETHASONE
     Dosage: 3.3 MG, UNK
     Route: 065
     Dates: start: 20161102, end: 20161102
  63. DEXAMETHASONE. [Suspect]
     Active Substance: DEXAMETHASONE
     Dosage: 6.6 MG, UNK
     Route: 065
     Dates: start: 20170327, end: 20170327
  64. DEXAMETHASONE. [Suspect]
     Active Substance: DEXAMETHASONE
     Dosage: 6.6 MG, UNK
     Route: 065
     Dates: start: 20170412, end: 20170412
  65. LENALIDOMIDE [Concomitant]
     Active Substance: LENALIDOMIDE
     Dosage: 5 MG, UNK
     Dates: start: 20170510, end: 20170530
  66. CARFILZOMIB [Suspect]
     Active Substance: CARFILZOMIB
     Dosage: 27 MG/M2, UNK
     Route: 041
     Dates: start: 20170321, end: 20170322
  67. DEXAMETHASONE. [Suspect]
     Active Substance: DEXAMETHASONE
     Dosage: 3.3 MG, UNK
     Route: 065
     Dates: start: 20161109, end: 20161109
  68. DEXAMETHASONE. [Suspect]
     Active Substance: DEXAMETHASONE
     Dosage: 3.3 MG, UNK
     Route: 065
     Dates: start: 20161130, end: 20161130
  69. DEXAMETHASONE. [Suspect]
     Active Substance: DEXAMETHASONE
     Dosage: 6.6 MG, UNK
     Route: 065
     Dates: start: 20170419, end: 20170419
  70. LENALIDOMIDE [Concomitant]
     Active Substance: LENALIDOMIDE
     Dosage: 10 MG, UNK
     Dates: start: 20161122, end: 20161212
  71. LENALIDOMIDE [Concomitant]
     Active Substance: LENALIDOMIDE
     Dosage: 10 MG, UNK
     Dates: start: 20170214, end: 20170217

REACTIONS (2)
  - Cytomegalovirus infection [Recovered/Resolved]
  - Leukopenia [Recovered/Resolved]

NARRATIVE: CASE EVENT DATE: 20170104
